FAERS Safety Report 17588179 (Version 2)
Quarter: 2020Q1

REPORT INFORMATION
  Report Type: Spontaneous
  Country: SE (occurrence: SE)
  Receive Date: 20200327
  Receipt Date: 20200331
  Transmission Date: 20200409
  Serious: Yes (Hospitalization)
  Sender: FDA-Public Use
  Company Number: SE-ELI_LILLY_AND_COMPANY-SE202003007797

PATIENT
  Age: 57 Year
  Sex: Female

DRUGS (7)
  1. ZYPADHERA [Suspect]
     Active Substance: OLANZAPINE PAMOATE
     Indication: HALLUCINATION
     Dosage: 300 MG, OTHER (EVERY 2 WEEKS)
     Route: 065
     Dates: start: 20200316
  2. ZYPADHERA [Suspect]
     Active Substance: OLANZAPINE PAMOATE
     Indication: SLEEP DISORDER
     Dosage: 300 MG, UNKNOWN
     Route: 065
     Dates: start: 2015
  3. LEVAXIN [Concomitant]
     Active Substance: LEVOTHYROXINE SODIUM
     Indication: PRODUCT USED FOR UNKNOWN INDICATION
     Dosage: 10 MG, DAILY
     Route: 065
  4. ZYPADHERA [Suspect]
     Active Substance: OLANZAPINE PAMOATE
     Indication: SLEEP DISORDER
     Dosage: 300 MG, UNKNOWN
     Route: 065
     Dates: start: 2015
  5. ZYPADHERA [Suspect]
     Active Substance: OLANZAPINE PAMOATE
     Indication: SLEEP DISORDER
     Dosage: 300 MG, UNKNOWN
     Route: 065
     Dates: start: 2015
  6. ZYPADHERA [Suspect]
     Active Substance: OLANZAPINE PAMOATE
     Indication: HALLUCINATION
     Dosage: 300 MG, OTHER (EVERY 2 WEEKS)
     Route: 065
     Dates: start: 20200316
  7. ZYPADHERA [Suspect]
     Active Substance: OLANZAPINE PAMOATE
     Indication: HALLUCINATION
     Dosage: 300 MG, OTHER (EVERY 2 WEEKS)
     Route: 065
     Dates: start: 20200316

REACTIONS (2)
  - Psychotic symptom [Unknown]
  - Insomnia [Unknown]
